FAERS Safety Report 6598822-4 (Version None)
Quarter: 2010Q1

REPORT INFORMATION
  Report Type: 
  Country: None (occurrence: None)
  Receive Date: 20100217
  Receipt Date: 20100201
  Transmission Date: 20100710
  Serious: Yes (Hospitalization)
  Sender: FDA-Public Use
  Company Number: 2010AL000665

PATIENT
  Age: 66 Year
  Sex: Male

DRUGS (6)
  1. OXYCODONE HCL [Suspect]
     Indication: BACK PAIN
     Dosage: PO
     Route: 048
     Dates: start: 20080130
  2. AXITINIB [Concomitant]
  3. GEMCITABINE [Concomitant]
  4. INSULIN HUMAN [Concomitant]
  5. NOVORAPID [Concomitant]
  6. PRIMPERAN [Concomitant]

REACTIONS (6)
  - ABDOMINAL PAIN [None]
  - ABDOMINAL TENDERNESS [None]
  - CONSTIPATION [None]
  - HYPOPHAGIA [None]
  - PYREXIA [None]
  - VOMITING [None]
